FAERS Safety Report 25852033 (Version 1)
Quarter: 2025Q3

REPORT INFORMATION
  Report Type: Spontaneous
  Country: EU (occurrence: EU)
  Receive Date: 20250926
  Receipt Date: 20250926
  Transmission Date: 20251020
  Serious: Yes (Other)
  Sender: MYLAN
  Company Number: EU-MYLANLABS-2025M1081423

PATIENT
  Sex: Male

DRUGS (12)
  1. ARIPIPRAZOLE [Suspect]
     Active Substance: ARIPIPRAZOLE
     Indication: Tic
     Dosage: MAX. DOSE OF 35 MG/DAY ,QD
  2. ARIPIPRAZOLE [Suspect]
     Active Substance: ARIPIPRAZOLE
     Dosage: MAX. DOSE OF 35 MG/DAY ,QD
     Route: 065
  3. ARIPIPRAZOLE [Suspect]
     Active Substance: ARIPIPRAZOLE
     Dosage: MAX. DOSE OF 35 MG/DAY ,QD
     Route: 065
  4. ARIPIPRAZOLE [Suspect]
     Active Substance: ARIPIPRAZOLE
     Dosage: MAX. DOSE OF 35 MG/DAY ,QD
  5. RISPERIDONE [Suspect]
     Active Substance: RISPERIDONE
     Indication: Tic
     Dosage: MAX. DOSE 8 MG/DAY, QD
  6. RISPERIDONE [Suspect]
     Active Substance: RISPERIDONE
     Dosage: MAX. DOSE 8 MG/DAY, QD
     Route: 065
  7. RISPERIDONE [Suspect]
     Active Substance: RISPERIDONE
     Dosage: MAX. DOSE 8 MG/DAY, QD
     Route: 065
  8. RISPERIDONE [Suspect]
     Active Substance: RISPERIDONE
     Dosage: MAX. DOSE 8 MG/DAY, QD
  9. TIAPRIDE [Suspect]
     Active Substance: TIAPRIDE
     Indication: Tic
     Dosage: MAX. DOSE 600 MG/DAY, QD
  10. TIAPRIDE [Suspect]
     Active Substance: TIAPRIDE
     Dosage: MAX. DOSE 600 MG/DAY, QD
     Route: 065
  11. TIAPRIDE [Suspect]
     Active Substance: TIAPRIDE
     Dosage: MAX. DOSE 600 MG/DAY, QD
     Route: 065
  12. TIAPRIDE [Suspect]
     Active Substance: TIAPRIDE
     Dosage: MAX. DOSE 600 MG/DAY, QD

REACTIONS (3)
  - Sedation [Recovering/Resolving]
  - Lethargy [Recovering/Resolving]
  - Off label use [Unknown]
